FAERS Safety Report 12585786 (Version 1)
Quarter: 2016Q3

REPORT INFORMATION
  Report Type: Report from Study
  Country: US (occurrence: US)
  Receive Date: 20160725
  Receipt Date: 20160725
  Transmission Date: 20161109
  Serious: No
  Sender: FDA-Public Use
  Company Number: US-AMGEN-USASL2016094284

PATIENT
  Age: 68 Year
  Sex: Female

DRUGS (1)
  1. ENBREL [Suspect]
     Active Substance: ETANERCEPT
     Indication: PRODUCT USED FOR UNKNOWN INDICATION
     Dosage: UNK, 2 SURECLICKS ON FIRST DAY,1 AT THE END OF THE FIRST WEEK AND THEN 1 EVERY OTHER WEEK
     Route: 065

REACTIONS (6)
  - Skin fissures [Unknown]
  - Off label use [Unknown]
  - Pain [Unknown]
  - Injection site haemorrhage [Unknown]
  - Injection site pain [Unknown]
  - Psoriasis [Unknown]
